FAERS Safety Report 15201535 (Version 10)
Quarter: 2020Q4

REPORT INFORMATION
  Report Type: Spontaneous
  Country: US (occurrence: US)
  Receive Date: 20180726
  Receipt Date: 20201026
  Transmission Date: 20210113
  Serious: No
  Sender: FDA-Public Use
  Company Number: US-PFIZER INC-2018301506

PATIENT
  Age: 67 Year
  Sex: Female

DRUGS (8)
  1. LYRICA [Suspect]
     Active Substance: PREGABALIN
     Indication: RAYNAUD^S PHENOMENON
  2. LYRICA [Suspect]
     Active Substance: PREGABALIN
     Indication: RESTLESS LEGS SYNDROME
  3. LYRICA [Suspect]
     Active Substance: PREGABALIN
     Indication: SYSTEMIC SCLERODERMA
  4. LYRICA [Suspect]
     Active Substance: PREGABALIN
     Indication: MYOPATHY
  5. LYRICA [Suspect]
     Active Substance: PREGABALIN
     Indication: RHEUMATOID VASCULITIS
     Dosage: 150 MG, DAILY (1 CAP ORAL DAILY FOR 90 DAYS)
     Route: 048
  6. LYRICA [Suspect]
     Active Substance: PREGABALIN
     Indication: RHEUMATOID ARTHRITIS
  7. LYRICA [Suspect]
     Active Substance: PREGABALIN
     Indication: FIBROMYALGIA
  8. LYRICA [Suspect]
     Active Substance: PREGABALIN
     Indication: DERMATOMYOSITIS

REACTIONS (3)
  - Malaise [Unknown]
  - Pain [Unknown]
  - Insomnia [Unknown]
